FAERS Safety Report 4692526-0 (Version None)
Quarter: 2005Q2

REPORT INFORMATION
  Report Type: 
  Country: None (occurrence: None)
  Receive Date: 20050617
  Receipt Date: 20050613
  Transmission Date: 20051028
  Serious: Yes (Hospitalization)
  Sender: FDA-Public Use
  Company Number: US-ROCHE-407598

PATIENT
  Age: 70 Year
  Sex: Female

DRUGS (2)
  1. BONIVA [Suspect]
     Indication: OSTEOPOROSIS
     Route: 048
     Dates: start: 20050603, end: 20050604
  2. FOSAMAX [Concomitant]
     Dosage: PRIOR TO TREATMENT WITH BONIVA.

REACTIONS (1)
  - CHEST PAIN [None]
